FAERS Safety Report 6755780-7 (Version None)
Quarter: 2010Q2

REPORT INFORMATION
  Report Type: 
  Country: None (occurrence: None)
  Receive Date: 20100604
  Receipt Date: 20100528
  Transmission Date: 20101027
  Serious: Yes (Hospitalization, Other)
  Sender: FDA-Public Use
  Company Number: US-ELI_LILLY_AND_COMPANY-US201006000323

PATIENT
  Sex: Female

DRUGS (7)
  1. HUMALOG [Suspect]
     Indication: DIABETES MELLITUS
     Dosage: UNK, AS NEEDED
  2. HUMALOG [Suspect]
     Dosage: UNK, AS NEEDED
     Dates: start: 20100520, end: 20100520
  3. LANTUS [Concomitant]
  4. LIPITOR [Concomitant]
  5. SYNTHROID [Concomitant]
  6. ESTROGENS [Concomitant]
  7. COZAAR [Concomitant]

REACTIONS (7)
  - BLOOD GLUCOSE INCREASED [None]
  - CERVIX CARCINOMA [None]
  - CONFUSIONAL STATE [None]
  - MENORRHAGIA [None]
  - POOR QUALITY DRUG ADMINISTERED [None]
  - SCAR [None]
  - VISUAL IMPAIRMENT [None]
